FAERS Safety Report 4511347-2 (Version None)
Quarter: 2004Q4

REPORT INFORMATION
  Report Type: 
  Country: None (occurrence: None)
  Receive Date: 20041122
  Receipt Date: 20041108
  Transmission Date: 20050328
  Serious: Yes (Other)
  Sender: FDA-Public Use
  Company Number: 2004090309

PATIENT
  Age: 55 Year
  Sex: Female
  Weight: 57.7 kg

DRUGS (6)
  1. VALDECOXIB [Suspect]
     Indication: SPINAL OSTEOARTHRITIS
     Dosage: (DAILY INTERVAL: EVERY DAY), ORAL
     Route: 048
     Dates: start: 20041013, end: 20041101
  2. PREMIQUE [Concomitant]
  3. SALBUTAMOL         (SALBUTAMOL) [Concomitant]
  4. BECLOMETHASONE DIPROPIONATE [Concomitant]
  5. ROFECOXIB [Concomitant]
  6. VIRUS INFLUENZA            (INFLUENZA VIRUS VACCINE POLYVALENT) [Concomitant]

REACTIONS (1)
  - PALPITATIONS [None]
